FAERS Safety Report 10301835 (Version 1)
Quarter: 2014Q3

REPORT INFORMATION
  Report Type: Spontaneous
  Country: PT (occurrence: PT)
  Receive Date: 20140714
  Receipt Date: 20140714
  Transmission Date: 20150326
  Serious: Yes (Other)
  Sender: FDA-Public Use
  Company Number: PT-PFIZER INC-2014192692

PATIENT
  Age: 68 Year
  Sex: Female

DRUGS (5)
  1. ZOLOFT [Suspect]
     Active Substance: SERTRALINE HYDROCHLORIDE
     Dosage: 50 MG (HALF 100MG TABLET), 1X/DAY
     Route: 048
     Dates: start: 201407
  2. CONCOR [Concomitant]
     Active Substance: BISOPROLOL FUMARATE
     Dosage: UNK
  3. XANAX [Concomitant]
     Active Substance: ALPRAZOLAM
     Dosage: UNK
  4. VITAMIN D [Concomitant]
     Active Substance: CHOLECALCIFEROL
     Dosage: 1 DF, 1X/DAY (AT NIGHT)
     Route: 048
  5. ZOLOFT [Suspect]
     Active Substance: SERTRALINE HYDROCHLORIDE
     Indication: DEPRESSION
     Dosage: 100 MG, 1X/DAY
     Route: 048
     Dates: end: 201407

REACTIONS (8)
  - Arthralgia [Unknown]
  - Hyperhidrosis [Unknown]
  - Muscle spasms [Unknown]
  - Urinary incontinence [Unknown]
  - Peripheral vascular disorder [Unknown]
  - Hepatic steatosis [Unknown]
  - Oedema peripheral [Unknown]
  - Gamma-glutamyltransferase increased [Unknown]
